FAERS Safety Report 6813550-5 (Version None)
Quarter: 2010Q3

REPORT INFORMATION
  Report Type: 
  Country: None (occurrence: None)
  Receive Date: 20100701
  Receipt Date: 20100623
  Transmission Date: 20110219
  Serious: Yes (Hospitalization, Other)
  Sender: FDA-Public Use
  Company Number: US-PFIZER INC-2010075558

PATIENT
  Sex: Female
  Weight: 60 kg

DRUGS (6)
  1. CHANTIX [Suspect]
     Indication: SMOKING CESSATION THERAPY
     Dosage: 0.5 MG, 1X/DAY
     Route: 048
     Dates: start: 20100608, end: 20100601
  2. CHANTIX [Suspect]
     Dosage: 0.5 MG, 2X/DAY
     Route: 048
     Dates: start: 20100614, end: 20100601
  3. CHANTIX [Suspect]
     Dosage: 1 MG, 2X/DAY
     Route: 048
     Dates: start: 20100601, end: 20100623
  4. NASONEX [Concomitant]
     Dosage: UNK
  5. VICODIN [Concomitant]
     Dosage: UNK, 2X/DAY
  6. LISINOPRIL [Concomitant]
     Indication: HYPERTENSION

REACTIONS (8)
  - DIARRHOEA [None]
  - DYSPNOEA [None]
  - GASTRIC ULCER [None]
  - GASTROINTESTINAL BACTERIAL INFECTION [None]
  - HAEMATOCHEZIA [None]
  - LARGE INTESTINAL ULCER [None]
  - OROPHARYNGEAL BLISTERING [None]
  - PNEUMONIA [None]
